FAERS Safety Report 14288362 (Version 1)
Quarter: 2017Q4

REPORT INFORMATION
  Report Type: Report from Study
  Country: FR (occurrence: FR)
  Receive Date: 20171214
  Receipt Date: 20171214
  Transmission Date: 20180321
  Serious: Yes (Death, Hospitalization, Other)
  Sender: FDA-Public Use
  Company Number: FR-ASTELLAS-2017US053205

PATIENT
  Age: 64 Year
  Sex: Male

DRUGS (19)
  1. CORTANCYL [Concomitant]
     Active Substance: PREDNISONE
     Indication: IMMUNOSUPPRESSANT DRUG THERAPY
     Route: 065
     Dates: start: 20140701, end: 20141217
  2. URSOLVAN [Concomitant]
     Active Substance: URSODIOL
     Indication: PRODUCT USED FOR UNKNOWN INDICATION
     Route: 065
  3. NOVORAPID [Concomitant]
     Active Substance: INSULIN ASPART
     Indication: PRODUCT USED FOR UNKNOWN INDICATION
     Dosage: 300 IU/3ML, (ACCORDING TO BLOOD GLUCOSE LEVEL BEFORE MEAL)
     Route: 065
  4. MYFORTIC [Suspect]
     Active Substance: MYCOPHENOLATE SODIUM
     Indication: LIVER TRANSPLANT
     Route: 065
     Dates: start: 20140702, end: 20160104
  5. MYFORTIC [Suspect]
     Active Substance: MYCOPHENOLATE SODIUM
     Indication: IMMUNOSUPPRESSANT DRUG THERAPY
     Route: 065
     Dates: start: 20160105
  6. VENTOLINE [Concomitant]
     Active Substance: ALBUTEROL
     Indication: PRODUCT USED FOR UNKNOWN INDICATION
     Route: 065
  7. CERTICAN [Suspect]
     Active Substance: EVEROLIMUS
     Indication: LIVER TRANSPLANT
     Dosage: UNK, UNKNOWN FREQ.
     Route: 048
  8. TAHOR [Concomitant]
     Active Substance: ATORVASTATIN CALCIUM
     Indication: PRODUCT USED FOR UNKNOWN INDICATION
     Route: 065
  9. EUPRESSYL [Concomitant]
     Active Substance: URAPIDIL
     Indication: PRODUCT USED FOR UNKNOWN INDICATION
     Route: 065
  10. MYFORTIC [Suspect]
     Active Substance: MYCOPHENOLATE SODIUM
     Route: 065
     Dates: start: 20140513, end: 20140701
  11. CERTICAN [Suspect]
     Active Substance: EVEROLIMUS
     Indication: PROPHYLAXIS AGAINST TRANSPLANT REJECTION
  12. CERTICAN [Suspect]
     Active Substance: EVEROLIMUS
     Indication: IMMUNOSUPPRESSANT DRUG THERAPY
  13. LEVEMIR [Concomitant]
     Active Substance: INSULIN DETEMIR
     Indication: PRODUCT USED FOR UNKNOWN INDICATION
     Dosage: 300 IU/3 ML (2-26 IU), QD
     Route: 065
  14. PLAVIX [Concomitant]
     Active Substance: CLOPIDOGREL BISULFATE
     Indication: PRODUCT USED FOR UNKNOWN INDICATION
     Route: 065
  15. TACROLIMUS. [Suspect]
     Active Substance: TACROLIMUS
     Indication: IMMUNOSUPPRESSANT DRUG THERAPY
     Route: 065
     Dates: start: 20140701, end: 20141217
  16. INIPOMP [Concomitant]
     Active Substance: PANTOPRAZOLE SODIUM
     Indication: PRODUCT USED FOR UNKNOWN INDICATION
     Route: 065
  17. TACROLIMUS. [Suspect]
     Active Substance: TACROLIMUS
     Indication: IMMUNOSUPPRESSANT DRUG THERAPY
     Route: 065
     Dates: start: 20150106, end: 20150928
  18. AVLOCARDYL [Concomitant]
     Active Substance: PROPRANOLOL HYDROCHLORIDE
     Indication: PRODUCT USED FOR UNKNOWN INDICATION
     Route: 065
  19. SERETIDE [Concomitant]
     Active Substance: FLUTICASONE PROPIONATE\SALMETEROL XINAFOATE
     Indication: PRODUCT USED FOR UNKNOWN INDICATION
     Route: 065

REACTIONS (35)
  - Cholestasis [Unknown]
  - Cholangitis [Unknown]
  - Gamma-glutamyltransferase increased [Recovered/Resolved]
  - Confusional state [Not Recovered/Not Resolved]
  - Renal vein thrombosis [Fatal]
  - Renal cancer [Fatal]
  - Ischaemia [Unknown]
  - Hypoxia [Unknown]
  - Hypertension [Not Recovered/Not Resolved]
  - Urinary tract infection [Recovered/Resolved]
  - Pruritus [Unknown]
  - Skin disorder [Unknown]
  - General physical health deterioration [Unknown]
  - Prostate cancer recurrent [Not Recovered/Not Resolved]
  - Lymphangiosis carcinomatosa [Not Recovered/Not Resolved]
  - Type 1 diabetes mellitus [Recovered/Resolved]
  - Klebsiella infection [Recovered/Resolved]
  - Respiratory distress [Not Recovered/Not Resolved]
  - Bone pain [Fatal]
  - Prostatic specific antigen increased [Not Recovered/Not Resolved]
  - Pneumobilia [Recovered/Resolved]
  - Phlebitis [Recovered/Resolved]
  - Glycosylated haemoglobin increased [Recovered/Resolved]
  - Wheezing [Unknown]
  - Haematuria [Not Recovered/Not Resolved]
  - Metastases to bone [Fatal]
  - Oxygen saturation decreased [Recovered/Resolved]
  - Urinary tract infection bacterial [Recovered/Resolved]
  - Dehydration [Recovered/Resolved]
  - Haematoma [Not Recovered/Not Resolved]
  - Malaise [Unknown]
  - Acute kidney injury [Not Recovered/Not Resolved]
  - Muscle spasticity [Unknown]
  - Hyperlipidaemia [Not Recovered/Not Resolved]
  - Decreased appetite [Not Recovered/Not Resolved]

NARRATIVE: CASE EVENT DATE: 201407
